FAERS Safety Report 15595133 (Version 6)
Quarter: 2020Q4

REPORT INFORMATION
  Report Type: Spontaneous
  Country: JP (occurrence: JP)
  Receive Date: 20181107
  Receipt Date: 20201209
  Transmission Date: 20210113
  Serious: Yes (Other)
  Sender: FDA-Public Use
  Company Number: JP-BRISTOL-MYERS SQUIBB COMPANY-BMS-2018-103754

PATIENT
  Age: 8 Decade
  Sex: Male
  Weight: 62 kg

DRUGS (3)
  1. FLUOROURACIL. [Concomitant]
     Active Substance: FLUOROURACIL
     Indication: GASTRIC CANCER
     Dosage: UNK
     Route: 065
     Dates: start: 201812, end: 201812
  2. ISOVORIN [CALCIUM LEVOFOLINATE] [Concomitant]
     Indication: GASTRIC CANCER
     Dosage: UNK
     Route: 065
     Dates: start: 201812, end: 201812
  3. OPDIVO [Suspect]
     Active Substance: NIVOLUMAB
     Indication: GASTRIC CANCER
     Dosage: 3 MILLIGRAM/KILOGRAM, Q2WK
     Route: 041
     Dates: start: 2018, end: 2018

REACTIONS (3)
  - Gastric perforation [Recovered/Resolved]
  - Decreased appetite [Unknown]
  - Nutritional condition abnormal [Unknown]

NARRATIVE: CASE EVENT DATE: 2018
